FAERS Safety Report 26005832 (Version 1)
Quarter: 2025Q4

REPORT INFORMATION
  Report Type: Spontaneous
  Country: JP (occurrence: JP)
  Receive Date: 20251106
  Receipt Date: 20251106
  Transmission Date: 20260118
  Serious: Yes (Other)
  Sender: ROCHE
  Company Number: JP-CHUGAI-2025032771

PATIENT
  Age: 82 Year
  Sex: Female

DRUGS (1)
  1. VABYSMO [Suspect]
     Active Substance: FARICIMAB-SVOA
     Indication: Neovascular age-related macular degeneration
     Dosage: UNK, STRENGTH 120 MG/ML
     Route: 031
     Dates: start: 20251010, end: 20251010

REACTIONS (2)
  - Facial paralysis [Recovering/Resolving]
  - Corneal erosion [Unknown]

NARRATIVE: CASE EVENT DATE: 20251010
